FAERS Safety Report 9447894 (Version 1)
Quarter: 2013Q3

REPORT INFORMATION
  Report Type: Spontaneous
  Country: GB (occurrence: None)
  Receive Date: 20130806
  Receipt Date: 20130806
  Transmission Date: 20140515
  Serious: Yes (Life-Threatening, Hospitalization, Disabling)
  Sender: FDA-Public Use
  Company Number: GB-DEXPHARM-20130467

PATIENT
  Age: 60 Year
  Sex: Male

DRUGS (3)
  1. DICLOFENAC [Suspect]
     Indication: MYALGIA
     Dosage: GP PRESCRIBES A TWO WEEK COURSE FOR A MUSCULAR PAIN AND GOUT.
     Route: 048
     Dates: start: 201209, end: 201309
  2. CALCICHEW [Concomitant]
  3. PRAVASTATIN [Concomitant]

REACTIONS (2)
  - Deep vein thrombosis [None]
  - Pulmonary embolism [None]
